FAERS Safety Report 10209570 (Version 1)
Quarter: 2014Q2

REPORT INFORMATION
  Report Type: Spontaneous
  Country: US (occurrence: US)
  Receive Date: 20140602
  Receipt Date: 20140602
  Transmission Date: 20141212
  Serious: Yes (Other)
  Sender: FDA-Public Use
  Company Number: US-ROCHE-1410548

PATIENT
  Age: 69 Year
  Sex: Female

DRUGS (5)
  1. LUCENTIS [Suspect]
     Indication: DIABETIC RETINOPATHY
     Dosage: BOTH EYES.
     Route: 050
     Dates: start: 2013
  2. SIMVASTATIN [Concomitant]
     Indication: BLOOD CHOLESTEROL
  3. METFORMIN [Concomitant]
     Indication: DIABETES MELLITUS
     Route: 048
  4. HCTZ [Concomitant]
  5. XANAX [Concomitant]
     Dosage: TAKES AS NEEDED
     Route: 048

REACTIONS (7)
  - Skin cancer [Not Recovered/Not Resolved]
  - Tenderness [Not Recovered/Not Resolved]
  - Upper-airway cough syndrome [Not Recovered/Not Resolved]
  - Nausea [Recovered/Resolved]
  - Foreign body sensation in eyes [Not Recovered/Not Resolved]
  - Eye pain [Not Recovered/Not Resolved]
  - Anaemia [Unknown]
